FAERS Safety Report 15242891 (Version 3)
Quarter: 2018Q3

REPORT INFORMATION
  Report Type: Report from Study
  Country: CA (occurrence: CA)
  Receive Date: 20180806
  Receipt Date: 20180906
  Transmission Date: 20181010
  Serious: Yes (Hospitalization, Other)
  Sender: FDA-Public Use
  Company Number: CA-JNJFOC-20180610997

PATIENT
  Age: 83 Year
  Sex: Female
  Weight: 56.1 kg

DRUGS (2)
  1. REMICADE [Suspect]
     Active Substance: INFLIXIMAB
     Indication: CROHN^S DISEASE
     Dosage: STRENGTH = 100 MG
     Route: 042
     Dates: start: 20171003
  2. PREDNISONE. [Concomitant]
     Active Substance: PREDNISONE
     Indication: CROHN^S DISEASE
     Route: 048
     Dates: start: 20180516

REACTIONS (6)
  - Urinary tract infection [Unknown]
  - Product use issue [Unknown]
  - Off label use [Unknown]
  - Pneumonia [Unknown]
  - Skin cancer [Unknown]
  - Vertigo positional [Unknown]

NARRATIVE: CASE EVENT DATE: 20180623
